FAERS Safety Report 25753065 (Version 2)
Quarter: 2025Q3

REPORT INFORMATION
  Report Type: Report from Study
  Country: GB (occurrence: GB)
  Receive Date: 20250902
  Receipt Date: 20250924
  Transmission Date: 20251021
  Serious: No
  Sender: JOHNSON AND JOHNSON
  Company Number: GB-JNJFOC-20250828567

PATIENT
  Sex: Female

DRUGS (1)
  1. SIMPONI [Suspect]
     Active Substance: GOLIMUMAB
     Indication: Rheumatoid arthritis
     Dosage: STRENGTH : 50.00 MG / 0.50 ML
     Route: 058

REACTIONS (2)
  - Device issue [Unknown]
  - Inappropriate schedule of product administration [Unknown]
